FAERS Safety Report 10953801 (Version 2)
Quarter: 2016Q2

REPORT INFORMATION
  Report Type: Spontaneous
  Country: US (occurrence: US)
  Receive Date: 20150325
  Receipt Date: 20160425
  Transmission Date: 20160815
  Serious: Yes (Other)
  Sender: FDA-Public Use
  Company Number: US-AMGEN-USASP2015021387

PATIENT
  Age: 25 Year
  Sex: Female

DRUGS (1)
  1. BLINCYTO [Suspect]
     Active Substance: BLINATUMOMAB
     Indication: PRODUCT USED FOR UNKNOWN INDICATION
     Dosage: 28 MUG, QD (5 ML/HR)
     Route: 042

REACTIONS (4)
  - Cranial nerve disorder [Unknown]
  - Neurotoxicity [Unknown]
  - Blast cell count increased [Unknown]
  - Facial paralysis [Unknown]
